FAERS Safety Report 14777820 (Version 2)
Quarter: 2018Q2

REPORT INFORMATION
  Report Type: Spontaneous
  Country: US (occurrence: US)
  Receive Date: 20180419
  Receipt Date: 20180508
  Transmission Date: 20180711
  Serious: Yes (Other)
  Sender: FDA-Public Use
  Company Number: US-AMGEN-USASP2018050011

PATIENT
  Sex: Female
  Weight: 109.66 kg

DRUGS (8)
  1. CIMZIA [Concomitant]
     Active Substance: CERTOLIZUMAB PEGOL
     Indication: RHEUMATOID ARTHRITIS
     Dosage: UNK
  2. LEFLUNOMIDE. [Suspect]
     Active Substance: LEFLUNOMIDE
     Indication: PRODUCT USED FOR UNKNOWN INDICATION
     Dosage: 20 MG, QD
     Route: 048
     Dates: end: 2017
  3. METHOTREXATE. [Suspect]
     Active Substance: METHOTREXATE
     Indication: RHEUMATOID ARTHRITIS
     Dosage: .08 UNK
     Route: 065
     Dates: start: 2018
  4. ARAVA [Concomitant]
     Active Substance: LEFLUNOMIDE
     Indication: RHEUMATOID ARTHRITIS
     Dosage: UNK
  5. XELJANZ XR [Suspect]
     Active Substance: TOFACITINIB CITRATE
     Indication: PALINDROMIC RHEUMATISM
     Dosage: 11 MG, QD
     Route: 048
  6. ENBREL [Suspect]
     Active Substance: ETANERCEPT
     Indication: RHEUMATOID ARTHRITIS
  7. ENBREL [Suspect]
     Active Substance: ETANERCEPT
     Indication: PALINDROMIC RHEUMATISM
     Dosage: UNK
     Route: 065
     Dates: end: 2017
  8. METHOTREXATE. [Suspect]
     Active Substance: METHOTREXATE
     Indication: PRODUCT USED FOR UNKNOWN INDICATION
     Dosage: .10 UNK
     Route: 048

REACTIONS (7)
  - Memory impairment [Not Recovered/Not Resolved]
  - Diarrhoea [Unknown]
  - Thinking abnormal [Unknown]
  - Nausea [Unknown]
  - Off label use [Unknown]
  - Palindromic rheumatism [Not Recovered/Not Resolved]
  - Visual impairment [Not Recovered/Not Resolved]

NARRATIVE: CASE EVENT DATE: 2017
